FAERS Safety Report 18336229 (Version 1)
Quarter: 2020Q4

REPORT INFORMATION
  Report Type: Spontaneous
  Country: BR (occurrence: BR)
  Receive Date: 20201001
  Receipt Date: 20201001
  Transmission Date: 20210113
  Serious: Yes (Other)
  Sender: FDA-Public Use
  Company Number: BR-ABBVIE-20K-020-3591330-00

PATIENT
  Age: 34 Year
  Sex: Female

DRUGS (2)
  1. ADALIMUMAB [Suspect]
     Active Substance: ADALIMUMAB
     Indication: CROHN^S DISEASE
     Route: 058
     Dates: start: 2010
  2. ADALIMUMAB [Suspect]
     Active Substance: ADALIMUMAB
     Dosage: DOSE OPTIMIZED
     Route: 058
     Dates: start: 2015

REACTIONS (2)
  - Paradoxical drug reaction [Unknown]
  - Hidradenitis [Recovering/Resolving]
